FAERS Safety Report 4404792-7 (Version None)
Quarter: 2004Q3

REPORT INFORMATION
  Report Type: 
  Country: None (occurrence: None)
  Receive Date: 20040722
  Receipt Date: 20040715
  Transmission Date: 20050211
  Serious: Yes (Hospitalization)
  Sender: FDA-Public Use
  Company Number: PHNU2004DE02527

PATIENT
  Sex: Male

DRUGS (1)
  1. ELIDEL [Suspect]
     Route: 061

REACTIONS (2)
  - FEBRILE CONVULSION [None]
  - VARICELLA [None]
